FAERS Safety Report 25600629 (Version 1)
Quarter: 2025Q3

REPORT INFORMATION
  Report Type: Spontaneous
  Country: US (occurrence: US)
  Receive Date: 20250724
  Receipt Date: 20250724
  Transmission Date: 20251021
  Serious: Yes (Other)
  Sender: BAYER HEALTHCARE PHARMACEUTICALS INC.
  Company Number: US-BAYER-2025A096783

PATIENT
  Age: 53 Year
  Sex: Female

DRUGS (3)
  1. RIOCIGUAT [Suspect]
     Active Substance: RIOCIGUAT
     Indication: Pulmonary arterial hypertension
     Dosage: 2.5 MG, TID
     Dates: start: 202302
  2. RIOCIGUAT [Suspect]
     Active Substance: RIOCIGUAT
     Indication: Sarcoidosis
  3. MACITENTAN [Suspect]
     Active Substance: MACITENTAN
     Dosage: 10 MG, QD

REACTIONS (4)
  - Left ventricular failure [None]
  - Right ventricular failure [None]
  - Drug ineffective for unapproved indication [None]
  - Product prescribing issue [None]
